FAERS Safety Report 7670861-1 (Version None)
Quarter: 2011Q3

REPORT INFORMATION
  Report Type: 
  Country: None (occurrence: None)
  Receive Date: 20110805
  Receipt Date: 20110805
  Transmission Date: 20111222
  Serious: Yes (Hospitalization)
  Sender: FDA-Public Use
  Company Number: None

PATIENT
  Sex: Female
  Weight: 65.9 kg

DRUGS (12)
  1. LEUCOVORIN CALCIUM [Suspect]
     Dosage: 520 MG
  2. ZOFRAN [Concomitant]
  3. DURAGESIC-100 [Concomitant]
  4. ATIVAN [Concomitant]
  5. MARINOL [Concomitant]
  6. LEXAPRO [Concomitant]
  7. ESTRADIOL-NORETHINDRONE (COMBIPATCH [Concomitant]
  8. ACETAMINOPHEN-HYDROCODONE (LORTAB [Concomitant]
  9. BEVACIZUMAB (RHUMAB VEGF) [Suspect]
     Dosage: 329.5 MG
  10. ELOXATIN [Suspect]
     Dosage: 110.5 MG
  11. FLUOROURACIL [Suspect]
     Dosage: 3640 MG
  12. OXYCODONE HCL [Concomitant]

REACTIONS (5)
  - HEADACHE [None]
  - VOMITING [None]
  - WHITE BLOOD CELL COUNT INCREASED [None]
  - CHILLS [None]
  - PYREXIA [None]
